FAERS Safety Report 8824674 (Version 1)
Quarter: 2012Q4

REPORT INFORMATION
  Report Type: 
  Country: NL (occurrence: NL)
  Receive Date: 20121004
  Receipt Date: 20121004
  Transmission Date: 20130627
  Serious: Yes (Death)
  Sender: FDA-Public Use
  Company Number: PHHY2012NL086249

PATIENT
  Age: 64 Year
  Sex: Female

DRUGS (4)
  1. ZOMETA [Suspect]
     Indication: BREAST CANCER METASTATIC
     Dosage: 4 mg/ 100 ml, once per 28 days
  2. ZOMETA [Suspect]
     Dosage: 4 mg/ 100 ml, once per 28 days
     Dates: start: 20110207
  3. ZOMETA [Suspect]
     Dosage: 4 mg/ 100 ml, once per 28 days
     Dates: start: 20120727
  4. ZOMETA [Suspect]
     Dosage: 4 mg/ 100 ml, once per 28 days
     Dates: start: 20120823

REACTIONS (1)
  - Death [Fatal]
